FAERS Safety Report 24742931 (Version 1)
Quarter: 2024Q4

REPORT INFORMATION
  Report Type: Spontaneous
  Country: US (occurrence: None)
  Receive Date: 20241217
  Receipt Date: 20241217
  Transmission Date: 20250115
  Serious: No
  Sender: Public
  Company Number: None

PATIENT
  Age: 76 Year
  Sex: Female

DRUGS (8)
  1. ENBREL [Suspect]
     Active Substance: ETANERCEPT
     Indication: Rheumatoid arthritis
     Dosage: FREQUENCY : WEEKLY;?
     Route: 058
     Dates: start: 20210128
  2. ENBREL [Suspect]
     Active Substance: ETANERCEPT
     Indication: Rheumatoid factor positive
  3. ENBREL [Suspect]
     Active Substance: ETANERCEPT
     Indication: Polyarthritis
  4. ASPIRIN LOW CHW 81 MG [Concomitant]
  5. B-12 TAB 500MCG [Concomitant]
  6. DULOXETINE CAP 20MG [Concomitant]
  7. FOLIC ACID TAB 400MCG [Concomitant]
  8. XYZAL TAB 5MG [Concomitant]

REACTIONS (2)
  - Colon operation [None]
  - Therapy interrupted [None]

NARRATIVE: CASE EVENT DATE: 20241216
